FAERS Safety Report 9458876 (Version 1)
Quarter: 2013Q3

REPORT INFORMATION
  Report Type: Spontaneous
  Country: US (occurrence: US)
  Receive Date: 20130814
  Receipt Date: 20130814
  Transmission Date: 20140515
  Serious: Yes (Other)
  Sender: FDA-Public Use
  Company Number: US-GLAXOSMITHKLINE-A1037548A

PATIENT
  Age: 55 Year
  Sex: Male

DRUGS (1)
  1. ADVAIR [Suspect]
     Indication: PRODUCT USED FOR UNKNOWN INDICATION
     Route: 065
     Dates: start: 20120314

REACTIONS (3)
  - Eye haemorrhage [Unknown]
  - Eye disorder [Not Recovered/Not Resolved]
  - Hypertension [Not Recovered/Not Resolved]
